FAERS Safety Report 10238521 (Version 1)
Quarter: 2014Q2

REPORT INFORMATION
  Report Type: Spontaneous
  Country: US (occurrence: None)
  Receive Date: 20140613
  Receipt Date: 20140613
  Transmission Date: 20141212
  Serious: Yes (Hospitalization)
  Sender: FDA-Public Use
  Company Number: None

PATIENT
  Age: 66 Year
  Sex: Male
  Weight: 91.8 kg

DRUGS (1)
  1. SUNITINIB MALATE [Suspect]
     Dates: start: 20140409, end: 20140507

REACTIONS (5)
  - Ascites [None]
  - Pyrexia [None]
  - Atrial fibrillation [None]
  - Discomfort [None]
  - Medical device complication [None]
